FAERS Safety Report 4297221-8 (Version None)
Quarter: 2004Q1

REPORT INFORMATION
  Report Type: 
  Country: None (occurrence: None)
  Receive Date: 20040217
  Receipt Date: 20040212
  Transmission Date: 20041129
  Serious: Yes (Hospitalization)
  Sender: FDA-Public Use
  Company Number: 04-02-0236

PATIENT
  Age: 76 Year
  Sex: Female

DRUGS (1)
  1. CLOZAPINE [Suspect]
     Dosage: 400 - 475MG QD ORAL
     Route: 048
     Dates: start: 20020701, end: 20040101

REACTIONS (2)
  - RENAL FAILURE [None]
  - UROSEPSIS [None]
